FAERS Safety Report 8196403-2 (Version None)
Quarter: 2012Q1

REPORT INFORMATION
  Report Type: 
  Country: None (occurrence: None)
  Receive Date: 20120229
  Receipt Date: 20110322
  Transmission Date: 20120608
  Serious: No
  Sender: FDA-Public Use
  Company Number: US-2011-10147

PATIENT
  Age: 53 Year
  Sex: Female

DRUGS (1)
  1. SAMSCA [Suspect]

REACTIONS (2)
  - THIRST [None]
  - INCORRECT DOSE ADMINISTERED [None]
